FAERS Safety Report 16453759 (Version 1)
Quarter: 2019Q2

REPORT INFORMATION
  Report Type: Spontaneous
  Country: US (occurrence: US)
  Receive Date: 20190619
  Receipt Date: 20190619
  Transmission Date: 20190711
  Serious: No
  Sender: FDA-Public Use
  Company Number: US-ASTRAZENECA-2019SE89428

PATIENT
  Age: 73 Year
  Sex: Female

DRUGS (1)
  1. PULMICORT FLEXHALER [Suspect]
     Active Substance: BUDESONIDE
     Indication: BRONCHIAL HYPERREACTIVITY
     Dosage: 180 MCG, TWO PUFFS TWICE A DAY
     Route: 055
     Dates: start: 2019, end: 20190614

REACTIONS (4)
  - Product use in unapproved indication [Unknown]
  - Tongue eruption [Not Recovered/Not Resolved]
  - Product dose omission [Unknown]
  - Off label use of device [Unknown]

NARRATIVE: CASE EVENT DATE: 2019
